FAERS Safety Report 5337456-6 (Version None)
Quarter: 2007Q2

REPORT INFORMATION
  Report Type: 
  Country: None (occurrence: None)
  Receive Date: 20070529
  Receipt Date: 20070517
  Transmission Date: 20071010
  Serious: Yes (Other)
  Sender: FDA-Public Use
  Company Number: BR-PFIZER INC-2007041076

PATIENT
  Sex: Female

DRUGS (1)
  1. CHAMPIX [Suspect]
     Indication: TOBACCO USER
     Route: 048

REACTIONS (5)
  - HEADACHE [None]
  - INSOMNIA [None]
  - MOTOR DYSFUNCTION [None]
  - NAUSEA [None]
  - THIRST [None]
